FAERS Safety Report 16286746 (Version 2)
Quarter: 2019Q2

REPORT INFORMATION
  Report Type: Report from Study
  Country: IL (occurrence: IL)
  Receive Date: 20190508
  Receipt Date: 20190522
  Transmission Date: 20190711
  Serious: Yes (Hospitalization)
  Sender: FDA-Public Use
  Company Number: IL-JNJFOC-20190500633

PATIENT
  Age: 74 Year
  Sex: Male
  Weight: 78 kg

DRUGS (4)
  1. IBRUTINIB [Suspect]
     Active Substance: IBRUTINIB
     Indication: DIFFUSE LARGE B-CELL LYMPHOMA
     Route: 048
     Dates: start: 20190326, end: 20190501
  2. IBRUTINIB [Suspect]
     Active Substance: IBRUTINIB
     Indication: DIFFUSE LARGE B-CELL LYMPHOMA
     Route: 048
     Dates: start: 20190506, end: 20190513
  3. RITUXIMAB. [Suspect]
     Active Substance: RITUXIMAB
     Indication: DIFFUSE LARGE B-CELL LYMPHOMA
     Route: 042
     Dates: end: 20190423
  4. BENDAMUSTINE [Suspect]
     Active Substance: BENDAMUSTINE
     Indication: DIFFUSE LARGE B-CELL LYMPHOMA
     Route: 042
     Dates: end: 20190423

REACTIONS (2)
  - Atrial flutter [Not Recovered/Not Resolved]
  - Febrile neutropenia [Not Recovered/Not Resolved]

NARRATIVE: CASE EVENT DATE: 20190430
